FAERS Safety Report 17751375 (Version 1)
Quarter: 2020Q2

REPORT INFORMATION
  Report Type: Spontaneous
  Country: US (occurrence: US)
  Receive Date: 20200506
  Receipt Date: 20200506
  Transmission Date: 20200714
  Serious: No
  Sender: FDA-Public Use
  Company Number: US-SA-2020SA114649

PATIENT
  Age: 68 Year
  Sex: Female

DRUGS (17)
  1. AMLODIPINE [Concomitant]
     Active Substance: AMLODIPINE BESYLATE
  2. CRANBERRY [VACCINIUM SPP.] [Concomitant]
     Dosage: POWDER
  3. STOOL SOFTENER (DOCUSATE) [Concomitant]
     Active Substance: DOCUSATE
  4. AMOXICILLIN. [Concomitant]
     Active Substance: AMOXICILLIN
  5. HYOSCYAMINE. [Concomitant]
     Active Substance: HYOSCYAMINE
     Dosage: TBD
  6. LATANOPROST. [Concomitant]
     Active Substance: LATANOPROST
     Dosage: SOL
  7. PREMARIN [Concomitant]
     Active Substance: ESTROGENS, CONJUGATED
  8. MULTIVITAMINS [VITAMINS NOS] [Concomitant]
     Active Substance: VITAMINS
  9. TOPROL XL [Concomitant]
     Active Substance: METOPROLOL SUCCINATE
     Dosage: TB2
  10. COQ10 [UBIDECARENONE] [Concomitant]
     Active Substance: UBIDECARENONE
  11. ASPIRIN [ACETYLSALICYLIC ACID] [Concomitant]
     Active Substance: ASPIRIN
     Dosage: POWDER
  12. BIOTIN [Concomitant]
     Active Substance: BIOTIN
     Dosage: POWDER
  13. ALPRAZOLAM. [Concomitant]
     Active Substance: ALPRAZOLAM
     Dosage: POWDER
  14. GANCICLOVIR. [Concomitant]
     Active Substance: GANCICLOVIR
     Dosage: SOL; 500 MG/250
  15. AUBAGIO [Suspect]
     Active Substance: TERIFLUNOMIDE
     Indication: PRODUCT USED FOR UNKNOWN INDICATION
     Dosage: 1 DF, QD
  16. CALCIUM [Concomitant]
     Active Substance: CALCIUM
  17. PROLIA [Concomitant]
     Active Substance: DENOSUMAB
     Dosage: SOS

REACTIONS (1)
  - Muscle twitching [Unknown]
